FAERS Safety Report 16356759 (Version 14)
Quarter: 2022Q1

REPORT INFORMATION
  Report Type: Other
  Country: DE (occurrence: None)
  Receive Date: 20190527
  Receipt Date: 20220101
  Transmission Date: 20220423
  Serious: Yes (Other)
  Sender: FDA-Public Use
  Company Number: DE-ROCHE-2161436

PATIENT
  Age: 53 Year
  Sex: Female

DRUGS (7)
  1. OCREVUS [Suspect]
     Active Substance: OCRELIZUMAB
     Indication: Relapsing-remitting multiple sclerosis
     Dosage: 2ND ADMINISTRATION ON 11/APR/2018? ON 28/OCT/2019, HAD 5 TH INFUSION
     Route: 042
     Dates: start: 20180328
  2. OCREVUS [Suspect]
     Active Substance: OCRELIZUMAB
     Route: 042
     Dates: start: 20181015
  3. OCREVUS [Suspect]
     Active Substance: OCRELIZUMAB
     Route: 042
     Dates: start: 20190415
  4. OCREVUS [Suspect]
     Active Substance: OCRELIZUMAB
     Route: 042
     Dates: start: 20200415
  5. OCREVUS [Suspect]
     Active Substance: OCRELIZUMAB
     Route: 042
     Dates: start: 20201022
  6. VITAMIN D NOS [Concomitant]
     Active Substance: VITAMIN D NOS
  7. COVID-19 VACCINE [Concomitant]

REACTIONS (20)
  - Dislocation of vertebra [Unknown]
  - Multiple sclerosis [Recovered/Resolved]
  - Throat irritation [Recovered/Resolved]
  - Cough [Recovered/Resolved]
  - Oropharyngeal pain [Recovered/Resolved]
  - Headache [Recovered/Resolved]
  - Dizziness [Recovered/Resolved]
  - Nausea [Recovered/Resolved]
  - Hypoaesthesia [Not Recovered/Not Resolved]
  - Paraesthesia [Recovering/Resolving]
  - Asthenia [Recovered/Resolved]
  - Aphonia [Recovered/Resolved]
  - Fatigue [Not Recovered/Not Resolved]
  - Nasopharyngitis [Recovered/Resolved]
  - Oral herpes [Recovered/Resolved]
  - Cardiovascular disorder [Recovered/Resolved]
  - Gait disturbance [Not Recovered/Not Resolved]
  - Vomiting [Recovered/Resolved]
  - Dental fistula [Not Recovered/Not Resolved]
  - Pyrexia [Recovered/Resolved]

NARRATIVE: CASE EVENT DATE: 20180328
